FAERS Safety Report 5505655-6 (Version None)
Quarter: 2007Q4

REPORT INFORMATION
  Report Type: 
  Country: None (occurrence: None)
  Receive Date: 20071102
  Receipt Date: 20071023
  Transmission Date: 20080405
  Serious: Yes (Other)
  Sender: FDA-Public Use
  Company Number: JP-PFIZER INC-2007073268

PATIENT
  Sex: Female
  Weight: 5.8 kg

DRUGS (7)
  1. SOLU-MEDROL [Suspect]
     Indication: KAWASAKI'S DISEASE
     Dosage: DAILY DOSE:180MG
     Route: 042
     Dates: start: 20040801, end: 20040803
  2. GLOVENIN I [Suspect]
     Indication: KAWASAKI'S DISEASE
     Dosage: TEXT:12.5G; 2G/KG
     Dates: start: 20040729, end: 20040808
  3. SOLITA-T3 INJECTION [Concomitant]
     Route: 042
  4. PREDNISOLONE [Concomitant]
     Indication: KAWASAKI'S DISEASE
  5. HEPARIN SODIUM [Concomitant]
     Route: 042
  6. ACETYLSALICYLIC ACID SRT [Concomitant]
     Route: 048
  7. PERIACTIN [Concomitant]
     Route: 048
     Dates: start: 20040730, end: 20040804

REACTIONS (2)
  - HYPERTENSION [None]
  - PERIPHERAL EMBOLISM [None]
